FAERS Safety Report 9331927 (Version 1)
Quarter: 2013Q2

REPORT INFORMATION
  Report Type: Spontaneous
  Country: US (occurrence: US)
  Receive Date: 20130605
  Receipt Date: 20130605
  Transmission Date: 20140414
  Serious: Yes (Other)
  Sender: FDA-Public Use
  Company Number: US-BAXTER-2013BAX020691

PATIENT
  Age: 71 Year
  Sex: Female

DRUGS (2)
  1. DOBUTAMINE HYDROCHLORIDE IN 5% DEXTROSE INJECTION [Suspect]
     Indication: ARTERIOSPASM CORONARY
     Route: 065
  2. NOREPINEPHRINE [Suspect]
     Indication: ARTERIOSPASM CORONARY
     Route: 065

REACTIONS (1)
  - Myocardial stunning [Recovered/Resolved]
